FAERS Safety Report 12645547 (Version 1)
Quarter: 2016Q3

REPORT INFORMATION
  Report Type: Spontaneous
  Country: US (occurrence: US)
  Receive Date: 20160811
  Receipt Date: 20160811
  Transmission Date: 20161109
  Serious: No
  Sender: FDA-Public Use
  Company Number: US-BAYER-2016-147447

PATIENT
  Age: 84 Year
  Sex: Female
  Weight: 62.59 kg

DRUGS (1)
  1. CLARITIN [Suspect]
     Active Substance: LORATADINE
     Dosage: 1 DF, QD

REACTIONS (3)
  - Scab [Not Recovered/Not Resolved]
  - Skin haemorrhage [Recovered/Resolved]
  - Product package associated injury [Recovered/Resolved]
